FAERS Safety Report 10109256 (Version 1)
Quarter: 2014Q2

REPORT INFORMATION
  Report Type: Spontaneous
  Country: US (occurrence: None)
  Receive Date: 20140424
  Receipt Date: 20140424
  Transmission Date: 20141212
  Serious: Yes (Death, Life-Threatening, Hospitalization)
  Sender: FDA-Public Use
  Company Number: None

PATIENT
  Sex: Male
  Weight: 99.79 kg

DRUGS (5)
  1. CITALOPRAM HYDROBROMIDE [Suspect]
     Indication: PANIC ATTACK
     Dosage: ABSTRACTED BY FDA REP
  2. FLUOXETINE HYDROCHLORIDE [Suspect]
     Dosage: ABSTRACTED BY FDA REP
  3. WELLBUTRIN XL [Suspect]
     Dosage: ABSTRACTED BY FDA REP
  4. CLONAZEPAM 1 MG [Suspect]
     Dosage: ABSTRACTED BY FDA REP
  5. SEROQUEL XR [Suspect]
     Dosage: ABSTRACTED BY FDA REP

REACTIONS (7)
  - Mental impairment [None]
  - Confusional state [None]
  - Abnormal behaviour [None]
  - Agitation [None]
  - Social avoidant behaviour [None]
  - Tobacco user [None]
  - Completed suicide [None]
